FAERS Safety Report 5269326-6 (Version None)
Quarter: 2007Q1

REPORT INFORMATION
  Report Type: 
  Country: None (occurrence: None)
  Receive Date: 20070319
  Receipt Date: 20070308
  Transmission Date: 20070707
  Serious: Yes (Other)
  Sender: FDA-Public Use
  Company Number: FI-PFIZER INC-2007017912

PATIENT
  Age: 63 Year
  Sex: Female

DRUGS (4)
  1. CHAMPIX [Suspect]
     Indication: EX-SMOKER
     Route: 048
  2. HYDREX [Concomitant]
     Indication: BLOOD PRESSURE
     Route: 048
  3. VENTOLIN [Concomitant]
     Dosage: FREQ:AS NEEDED
  4. PROGYNOVA [Concomitant]
     Indication: MENOPAUSAL SYMPTOMS
     Route: 048

REACTIONS (6)
  - CONSTIPATION [None]
  - ENTERITIS [None]
  - HYPERHIDROSIS [None]
  - INSOMNIA [None]
  - INTESTINAL OBSTRUCTION [None]
  - NAUSEA [None]
